FAERS Safety Report 13081559 (Version 1)
Quarter: 2017Q1

REPORT INFORMATION
  Report Type: Spontaneous
  Country: US (occurrence: US)
  Receive Date: 20170103
  Receipt Date: 20170103
  Transmission Date: 20170428
  Serious: Yes (Other)
  Sender: FDA-Public Use
  Company Number: US-JNJFOC-20161224714

PATIENT
  Age: 75 Year
  Sex: Male

DRUGS (1)
  1. REMICADE [Suspect]
     Active Substance: INFLIXIMAB
     Indication: PITYRIASIS RUBRA PILARIS
     Route: 042

REACTIONS (5)
  - Off label use [Unknown]
  - Renal failure [Unknown]
  - Product use issue [Unknown]
  - Treatment failure [Unknown]
  - Skin infection [Unknown]
